FAERS Safety Report 24677091 (Version 1)
Quarter: 2024Q4

REPORT INFORMATION
  Report Type: Spontaneous
  Country: US (occurrence: US)
  Receive Date: 20241129
  Receipt Date: 20241129
  Transmission Date: 20250114
  Serious: No
  Sender: CIPLA
  Company Number: US-CIPLA LTD.-2024US10355

PATIENT

DRUGS (18)
  1. GABAPENTIN [Suspect]
     Active Substance: GABAPENTIN
     Indication: Balance disorder
     Dosage: UNK
     Route: 048
     Dates: start: 20240908, end: 20240909
  2. GABAPENTIN [Suspect]
     Active Substance: GABAPENTIN
     Indication: Varicose vein
  3. GABAPENTIN [Suspect]
     Active Substance: GABAPENTIN
     Indication: Headache
  4. FLUDROCORTISONE [Concomitant]
     Active Substance: FLUDROCORTISONE
     Indication: Hypotension
     Dosage: 0.1 MILLIGRAM, QD
     Route: 065
     Dates: start: 2014
  5. PREDNISOLONE [Concomitant]
     Active Substance: PREDNISOLONE
     Indication: Arthritis
     Dosage: 5 MILLIGRAM, QD
     Route: 065
  6. OMEPRAZOLE [Concomitant]
     Active Substance: OMEPRAZOLE
     Indication: Product used for unknown indication
     Dosage: 40 MILLIGRAM, QD
     Route: 065
  7. DICYCLOMINE [Concomitant]
     Active Substance: DICYCLOMINE HYDROCHLORIDE
     Indication: Irritable bowel syndrome
     Dosage: 10 MILLIGRAM, BID (ONE AT MORNING AND ONE AT NIGHT) STARTED LONG TIME AGO ATLEAST 1O YEARS
     Route: 065
  8. DICYCLOMINE [Concomitant]
     Active Substance: DICYCLOMINE HYDROCHLORIDE
     Indication: Dyspepsia
  9. LEVOTHYROXINE [Concomitant]
     Active Substance: LEVOTHYROXINE
     Indication: Product used for unknown indication
     Dosage: 25 MICROGRAM, QD
     Route: 065
     Dates: start: 2014
  10. VITAMIN D3 [Concomitant]
     Active Substance: CHOLECALCIFEROL
     Indication: Malaise
     Dosage: 250 MICROGRAM, QD
     Route: 065
     Dates: start: 2019
  11. VITAMIN B12 [Concomitant]
     Active Substance: CYANOCOBALAMIN
     Indication: Malaise
     Dosage: 1000 MICROGRAM, QD
     Route: 065
  12. MELATONIN [Concomitant]
     Active Substance: MELATONIN
     Indication: Insomnia
     Dosage: 10 MILLIGRAM, QD
     Route: 065
     Dates: start: 2022
  13. MELATONIN [Concomitant]
     Active Substance: MELATONIN
     Dosage: 1 MORE PILL HALFWAY THROUGH NIGHT TO GET SLEEP
     Route: 065
     Dates: start: 2022
  14. TYLENOL [Concomitant]
     Active Substance: ACETAMINOPHEN
     Indication: Arthralgia
     Dosage: 1 MILLIGRAM, QD
     Route: 065
  15. TYLENOL [Concomitant]
     Active Substance: ACETAMINOPHEN
     Dosage: UNK, 1 TABLET A DAY AND SOMETIMES SHE TAKES 1 MORE PILL HALFWAY THROUGH THE NIGHT IF SHE STILL HAS P
     Route: 065
  16. PROGESTERONE [Concomitant]
     Active Substance: PROGESTERONE
     Indication: Product used for unknown indication
     Dosage: UNK
     Route: 065
  17. BIO COMPLETE 3 [Concomitant]
     Indication: Product used for unknown indication
     Dosage: UNK
     Route: 065
  18. BIOTIN [Concomitant]
     Active Substance: BIOTIN
     Indication: Hair disorder
     Dosage: UNK
     Route: 065

REACTIONS (10)
  - Throat irritation [Recovering/Resolving]
  - Hypokinesia [Recovering/Resolving]
  - Adverse event [Unknown]
  - Off label use [Unknown]
  - Therapy cessation [Unknown]
  - Hyperhidrosis [Recovering/Resolving]
  - Oesophageal pain [Recovering/Resolving]
  - Oropharyngeal pain [Recovering/Resolving]
  - Pyrexia [Recovered/Resolved]
  - Dysarthria [Recovering/Resolving]

NARRATIVE: CASE EVENT DATE: 20240901
